FAERS Safety Report 15391484 (Version 5)
Quarter: 2020Q1

REPORT INFORMATION
  Report Type: Spontaneous
  Country: DE (occurrence: DE)
  Receive Date: 20180917
  Receipt Date: 20200203
  Transmission Date: 20200409
  Serious: Yes (Congenital Anomaly, Other)
  Sender: FDA-Public Use
  Company Number: PHHY2018DE095030

PATIENT
  Sex: Male

DRUGS (14)
  1. VALSARTAN. [Suspect]
     Active Substance: VALSARTAN
     Indication: HYPERTENSION
     Route: 064
  2. AMLODIPINE [Suspect]
     Active Substance: AMLODIPINE BESYLATE
     Indication: HYPERTENSION
  3. METOPROLOL. [Suspect]
     Active Substance: METOPROLOL
     Indication: HYPERTENSION
  4. HYDROCHLOROTHIAZIDE. [Suspect]
     Active Substance: HYDROCHLOROTHIAZIDE
     Indication: FOETAL EXPOSURE DURING PREGNANCY
     Dosage: UNK
     Route: 064
  5. METHYLDOPA. [Suspect]
     Active Substance: METHYLDOPA
     Indication: FOETAL EXPOSURE DURING PREGNANCY
     Dosage: UNK
     Route: 064
  6. DESLORATADINE. [Suspect]
     Active Substance: DESLORATADINE
     Indication: HYPERTENSION
  7. METOPROLOL. [Suspect]
     Active Substance: METOPROLOL
     Indication: FOETAL EXPOSURE DURING PREGNANCY
     Dosage: UNK
     Route: 064
  8. METHYLDOPA. [Suspect]
     Active Substance: METHYLDOPA
     Indication: HYPERTENSION
  9. HYDROCHLOROTHIAZIDE. [Suspect]
     Active Substance: HYDROCHLOROTHIAZIDE
     Indication: HYPERTENSION
  10. VALSARTAN. [Suspect]
     Active Substance: VALSARTAN
     Indication: FOETAL EXPOSURE DURING PREGNANCY
     Dosage: UNK
     Route: 064
  11. DESLORATADINE. [Suspect]
     Active Substance: DESLORATADINE
     Indication: FOETAL EXPOSURE DURING PREGNANCY
     Dosage: UNK
     Route: 064
  12. AMLODIPINE [Suspect]
     Active Substance: AMLODIPINE BESYLATE
     Indication: FOETAL EXPOSURE DURING PREGNANCY
     Dosage: UNK
     Route: 064
  13. ALLOPURINOL. [Suspect]
     Active Substance: ALLOPURINOL
     Indication: FOETAL EXPOSURE DURING PREGNANCY
     Dosage: UNK
     Route: 064
  14. ALLOPURINOL. [Suspect]
     Active Substance: ALLOPURINOL
     Indication: HYPERTENSION

REACTIONS (11)
  - Umbilical hernia [Unknown]
  - Foetal exposure during pregnancy [Unknown]
  - Eyelid ptosis congenital [Unknown]
  - Respiratory distress [Unknown]
  - Infantile apnoea [Unknown]
  - Premature baby [Unknown]
  - Patent ductus arteriosus [Unknown]
  - Ductus arteriosus stenosis foetal [Unknown]
  - Bradycardia neonatal [Unknown]
  - Neonatal pneumonia [Unknown]
  - Accidental exposure to product [Unknown]
